FAERS Safety Report 8227849-1 (Version None)
Quarter: 2012Q1

REPORT INFORMATION
  Report Type: 
  Country: None (occurrence: None)
  Receive Date: 20120322
  Receipt Date: 20120309
  Transmission Date: 20120608
  Serious: Yes (Other)
  Sender: FDA-Public Use
  Company Number: US-ROCHE-1047995

PATIENT
  Sex: Female

DRUGS (3)
  1. BOCEPREVIR [Suspect]
     Indication: HEPATITIS C
     Dates: start: 20120205
  2. COPEGUS [Suspect]
     Indication: HEPATITIS C
     Dates: start: 20120102
  3. PEGINTERFERON ALFA-2A [Suspect]
     Indication: HEPATITIS C
     Dates: start: 20120102

REACTIONS (15)
  - DIARRHOEA [None]
  - BACK PAIN [None]
  - HAEMOGLOBIN DECREASED [None]
  - NAUSEA [None]
  - PYREXIA [None]
  - ASTHENIA [None]
  - TRANSFUSION [None]
  - ORAL PAIN [None]
  - HYPOAESTHESIA ORAL [None]
  - DYSGEUSIA [None]
  - WHITE BLOOD CELL COUNT DECREASED [None]
  - BLOOD URIC ACID INCREASED [None]
  - GLOSSODYNIA [None]
  - PLATELET COUNT DECREASED [None]
  - BLOOD BILIRUBIN INCREASED [None]
